FAERS Safety Report 26109893 (Version 1)
Quarter: 2025Q4

REPORT INFORMATION
  Report Type: Spontaneous
  Country: CN (occurrence: CN)
  Receive Date: 20251201
  Receipt Date: 20251201
  Transmission Date: 20260117
  Serious: Yes (Other)
  Sender: PURDUE
  Company Number: CN-NAPPMUNDI-GBR-2025-0130827

PATIENT
  Age: 69 Year
  Sex: Male
  Weight: 47.7 kg

DRUGS (5)
  1. MORPHINE SULFATE [Suspect]
     Active Substance: MORPHINE SULFATE
     Indication: Tumour pain
     Dosage: 60 MILLIGRAM, BID
     Route: 048
     Dates: end: 202511
  2. MORPHINE SULFATE [Suspect]
     Active Substance: MORPHINE SULFATE
     Dosage: 90 MILLIGRAM, BID
     Route: 048
     Dates: start: 20251105, end: 20251106
  3. MORPHINE SULFATE [Suspect]
     Active Substance: MORPHINE SULFATE
     Dosage: 60 MILLIGRAM, BID
     Route: 048
     Dates: start: 202511
  4. MORPHINE HYDROCHLORIDE [Suspect]
     Active Substance: MORPHINE HYDROCHLORIDE
     Indication: Tumour pain
     Dosage: 10 MILLIGRAM
     Route: 048
     Dates: end: 202511
  5. MORPHINE HYDROCHLORIDE [Suspect]
     Active Substance: MORPHINE HYDROCHLORIDE
     Dosage: 10 MILLIGRAM, DAILY
     Route: 048
     Dates: start: 20251106, end: 20251106

REACTIONS (4)
  - Miosis [Recovering/Resolving]
  - Pupillary reflex impaired [Recovering/Resolving]
  - Toxicity to various agents [Unknown]
  - Treatment noncompliance [Unknown]

NARRATIVE: CASE EVENT DATE: 20251101
